FAERS Safety Report 5625082-0 (Version None)
Quarter: 2008Q1

REPORT INFORMATION
  Report Type: 
  Country: None (occurrence: None)
  Receive Date: 20080208
  Receipt Date: 20080128
  Transmission Date: 20080703
  Serious: Yes (Other)
  Sender: FDA-Public Use
  Company Number: 2008AP000315

PATIENT
  Sex: Male

DRUGS (3)
  1. TERBINAFINE HCL [Suspect]
     Indication: NAIL INFECTION
     Dosage: 250 MG; QD PO, 250 MG; PO; QD
     Route: 048
  2. CARBAMAZEPINE [Suspect]
     Dosage: 400 MG; BID PO, 400 MG; PO; BID
     Route: 048
  3. LAMOTRIGINE [Concomitant]

REACTIONS (2)
  - DRUG INTERACTION [None]
  - PETIT MAL EPILEPSY [None]
